FAERS Safety Report 8487344-1 (Version None)
Quarter: 2012Q3

REPORT INFORMATION
  Report Type: 
  Country: None (occurrence: None)
  Receive Date: 20120705
  Receipt Date: 20120627
  Transmission Date: 20120928
  Serious: Yes (Other)
  Sender: FDA-Public Use
  Company Number: BR-AMGEN-BRASP2012041067

PATIENT
  Age: 65 Year
  Sex: Female
  Weight: 49 kg

DRUGS (4)
  1. CINACALCET HYDROCHLORIDE [Suspect]
     Indication: HYPERPARATHYROIDISM
     Dosage: UNK
     Route: 048
     Dates: start: 20111107
  2. OMEPRAZOLE [Concomitant]
     Dosage: 2 UNK, UNK
     Route: 048
  3. RENAGEL [Concomitant]
     Dosage: 8 UNK, UNK
     Route: 048
  4. ASPIRIN [Concomitant]

REACTIONS (5)
  - DISTURBANCE IN ATTENTION [None]
  - BLOOD GLUCOSE DECREASED [None]
  - DELUSION [None]
  - SOMNOLENCE [None]
  - BLOOD PRESSURE DECREASED [None]
